FAERS Safety Report 7414129-7 (Version None)
Quarter: 2011Q1

REPORT INFORMATION
  Report Type: 
  Country: None (occurrence: None)
  Receive Date: 20110302
  Receipt Date: 20101117
  Transmission Date: 20110831
  Serious: No
  Sender: FDA-Public Use
  Company Number: 018520

PATIENT
  Sex: Female
  Weight: 64 kg

DRUGS (6)
  1. METHOTREXATE [Concomitant]
  2. VITAMIN D [Concomitant]
  3. DICLOFENAC [Concomitant]
  4. CIMZIA [Suspect]
     Indication: RHEUMATOID ARTHRITIS
     Dosage: 400 MG 1X/MONTH SUBCUTANEOUS 200 MG 1X/2 WEEKS SUBCUTANEOUS
     Route: 058
     Dates: start: 20090901
  5. FOLIC ACID [Concomitant]
  6. AMBIEN [Concomitant]

REACTIONS (4)
  - INJECTION SITE REACTION [None]
  - HEART RATE INCREASED [None]
  - TACHYCARDIA [None]
  - DRUG INEFFECTIVE [None]
